FAERS Safety Report 17903180 (Version 2)
Quarter: 2020Q2

REPORT INFORMATION
  Report Type: Spontaneous
  Country: US (occurrence: US)
  Receive Date: 20200617
  Receipt Date: 20200624
  Transmission Date: 20200714
  Serious: Yes (Hospitalization, Other)
  Sender: FDA-Public Use
  Company Number: US-AUROBINDO-AUR-APL-2020-028575

PATIENT
  Age: 32 Year
  Sex: Male

DRUGS (2)
  1. HYDROCODONE [Concomitant]
     Active Substance: HYDROCODONE
     Indication: LUMBAR RADICULOPATHY
     Dosage: UNK
     Route: 065
  2. METHYLPREDNISOLONE SODIUM SUCCINATE FOR INJECTION [Suspect]
     Active Substance: METHYLPREDNISOLONE SODIUM SUCCINATE
     Indication: LUMBAR RADICULOPATHY
     Dosage: UNK
     Route: 008

REACTIONS (5)
  - Radiculopathy [Unknown]
  - Bursitis [Unknown]
  - Extradural abscess [Unknown]
  - Staphylococcal infection [Unknown]
  - Bursitis infective [Unknown]
